FAERS Safety Report 12923200 (Version 1)
Quarter: 2016Q4

REPORT INFORMATION
  Report Type: Spontaneous
  Country: US (occurrence: US)
  Receive Date: 20161109
  Receipt Date: 20161109
  Transmission Date: 20170207
  Serious: No
  Sender: FDA-Public Use
  Company Number: US-009507513-1611USA003607

PATIENT
  Age: 28 Year
  Sex: Female
  Weight: 58.5 kg

DRUGS (4)
  1. CLARITIN [Concomitant]
     Active Substance: LORATADINE
  2. NEXPLANON [Suspect]
     Active Substance: ETONOGESTREL
     Indication: CONTRACEPTION
     Dosage: 3 YEAR IMPLANT, IMPLANT ON LEFT ARM
     Route: 059
     Dates: start: 201503
  3. ADDERALL [Concomitant]
     Active Substance: AMPHETAMINE ASPARTATE\AMPHETAMINE SULFATE\DEXTROAMPHETAMINE SACCHARATE\DEXTROAMPHETAMINE SULFATE
  4. XANAX [Concomitant]
     Active Substance: ALPRAZOLAM

REACTIONS (7)
  - Implant site paraesthesia [Unknown]
  - Cerebral disorder [Unknown]
  - Headache [Unknown]
  - Fatigue [Unknown]
  - Constipation [Unknown]
  - Breast pain [Unknown]
  - Chest pain [Unknown]

NARRATIVE: CASE EVENT DATE: 201604
